FAERS Safety Report 5581269-7 (Version None)
Quarter: 2008Q1

REPORT INFORMATION
  Report Type: 
  Country: None (occurrence: None)
  Receive Date: 20080104
  Receipt Date: 20080102
  Transmission Date: 20080703
  Serious: Yes (Other)
  Sender: FDA-Public Use
  Company Number: DE-RB-008864-08

PATIENT
  Age: 30 Year
  Sex: Female

DRUGS (11)
  1. SUBOXONE [Suspect]
     Route: 060
     Dates: start: 20070810, end: 20070823
  2. TREVILOR [Concomitant]
     Dosage: DOSAGE AND FREQUENCY UNKNOWN
     Route: 065
  3. TREVILOR [Concomitant]
     Indication: DEPRESSION
     Dosage: DOSAGE AND FREQUENCY UNKNOWN
     Route: 065
  4. TRIMIPARIN [Concomitant]
     Dosage: DOSAGE AND FREQUENCY UNKNOWN
     Route: 065
  5. TRIMIPARIN [Concomitant]
     Indication: DEPRESSION
     Dosage: DOSAGE AND FREQUENCY UNKNOWN
     Route: 065
  6. AMISULPRID [Concomitant]
     Dosage: DOSAGE AND FREQUENCY UNKNOWN
     Route: 065
  7. AMISULPRID [Concomitant]
     Indication: DEPRESSION
     Dosage: DOSAGE AND FREQUENCY UNKNOWN
     Route: 065
  8. ALPRAZOLAM [Concomitant]
     Dosage: DOSAGE AND FREQUENCY UNKNOWN
     Route: 065
  9. ALPRAZOLAM [Concomitant]
     Indication: DEPRESSION
     Dosage: DOSAGE AND FREQUENCY UNKNOWN
     Route: 065
  10. VIANI FORTE [Concomitant]
     Dosage: DOSAGE AND FREQUENCY UNKNOWN
     Route: 065
  11. PREDNI [Concomitant]
     Dosage: DOSAGE AND FREQUENCY UNKNOWN
     Route: 065

REACTIONS (3)
  - BACK PAIN [None]
  - DIPLOPIA [None]
  - HEADACHE [None]
